FAERS Safety Report 9509340 (Version 1)
Quarter: 2013Q3

REPORT INFORMATION
  Report Type: Spontaneous
  Country: EG (occurrence: EG)
  Receive Date: 20130909
  Receipt Date: 20130909
  Transmission Date: 20140515
  Serious: Yes (Other)
  Sender: FDA-Public Use
  Company Number: EG-B.I. PHARMACEUTICALS,INC./RIDGEFIELD-2013-BI-27283ET

PATIENT
  Age: 29 Year
  Sex: Male

DRUGS (5)
  1. PRADAXA [Suspect]
     Indication: THROMBOSIS PROPHYLAXIS
     Route: 048
     Dates: start: 20130727, end: 20130826
  2. HEPARIN [Concomitant]
     Indication: THROMBOSIS
     Dosage: DOSE OER APPLICATION: 2.25
     Route: 042
     Dates: start: 20130826
  3. DAFLON [Concomitant]
     Indication: DEEP VEIN THROMBOSIS
     Dosage: 1 ANZ
     Route: 048
     Dates: start: 20130819
  4. MARVAN [Concomitant]
     Indication: DEEP VEIN THROMBOSIS
     Dosage: 10 MG
     Route: 048
     Dates: start: 2011, end: 2013
  5. DOXIUM [Concomitant]
     Indication: DEEP VEIN THROMBOSIS
     Dosage: 2 ANZ
     Route: 048
     Dates: start: 20130819, end: 20130826

REACTIONS (2)
  - Deep vein thrombosis [Not Recovered/Not Resolved]
  - Thrombosis [Not Recovered/Not Resolved]
